FAERS Safety Report 19688617 (Version 1)
Quarter: 2021Q3

REPORT INFORMATION
  Report Type: Spontaneous
  Country: US (occurrence: US)
  Receive Date: 20210812
  Receipt Date: 20210812
  Transmission Date: 20211014
  Serious: No
  Sender: FDA-Public Use
  Company Number: US-COLGATE PALMOLIVE COMPANY-20210100001

PATIENT
  Sex: Female

DRUGS (2)
  1. COLGATE TOTAL CLEAN MINT [Suspect]
     Active Substance: SODIUM FLUORIDE\TRICLOSAN
     Dosage: UNKNOWN DOSE
  2. COLGATE TOTAL SF WHITENING [Suspect]
     Active Substance: STANNOUS FLUORIDE
     Dosage: UNKNOWN DOSE

REACTIONS (1)
  - Cough [Unknown]
